FAERS Safety Report 22141348 (Version 1)
Quarter: 2023Q1

REPORT INFORMATION
  Report Type: Spontaneous
  Country: US (occurrence: None)
  Receive Date: 20230325
  Receipt Date: 20230325
  Transmission Date: 20230418
  Serious: Yes (Other)
  Sender: FDA-Public Use
  Company Number: None

PATIENT
  Age: 50 Year
  Sex: Female
  Weight: 48.6 kg

DRUGS (2)
  1. POLYMYXIN B SULFATE AND TRIMETHOPRIM [Suspect]
     Active Substance: POLYMYXIN B SULFATE\TRIMETHOPRIM SULFATE
     Indication: Hypersensitivity
     Dosage: OTHER QUANTITY : 3 DROP(S);?FREQUENCY : 3 TIMES A DAY;?
     Route: 047
     Dates: start: 20230321, end: 20230325
  2. hive meds [Concomitant]

REACTIONS (5)
  - Swelling face [None]
  - Eye swelling [None]
  - Eyelid function disorder [None]
  - Visual impairment [None]
  - Drug ineffective [None]

NARRATIVE: CASE EVENT DATE: 20230324
